FAERS Safety Report 10369234 (Version 1)
Quarter: 2014Q1

REPORT INFORMATION
  Report Type: Spontaneous
  Country: US (occurrence: None)
  Receive Date: 20140306
  Receipt Date: 20140306
  Transmission Date: 20141002
  Serious: Yes (Other)
  Sender: FDA-Public Use
  Company Number: 163-21880-13031212

PATIENT
  Age: 48 Year
  Sex: Female

DRUGS (6)
  1. REVLIMID (LENALIDOMIDE) (CAPSULES) [Suspect]
     Indication: PLASMA CELL MYELOMA
     Dosage: 25 MG, 14 IN 21 D, PO
     Route: 048
     Dates: start: 201112, end: 201203
  2. PREDNISONE (PREDNISONE) (UNKNOWN) [Concomitant]
  3. PLAQUENIL (HYDROXYCHLOROQUINE PHOSPHATE) (UNKNOWN) [Concomitant]
  4. PANTOPRAZOLE (PANTOPRAZOLE) (UNKNOWN) [Concomitant]
  5. TRAZODONE (TRAZODONE) (UNKNOWN) (TRAZODONE) [Concomitant]
  6. ALBUTEROL (SALBUTAMOL) [Concomitant]

REACTIONS (2)
  - Deep vein thrombosis [None]
  - Pneumonia [None]
